FAERS Safety Report 9368911 (Version 4)
Quarter: 2013Q3

REPORT INFORMATION
  Report Type: Report from Study
  Country: IT (occurrence: IT)
  Receive Date: 20130626
  Receipt Date: 20130904
  Transmission Date: 20140515
  Serious: Yes (Other)
  Sender: FDA-Public Use
  Company Number: IT-ROCHE-1237734

PATIENT
  Age: 80 Year
  Sex: Male
  Weight: 76 kg

DRUGS (6)
  1. VEMURAFENIB [Suspect]
     Indication: METASTATIC MALIGNANT MELANOMA
     Route: 048
     Dates: start: 20120801, end: 20130719
  2. LANOXIN [Concomitant]
     Indication: HYPERTENSION
  3. DOXAZOSINA [Concomitant]
     Indication: HYPERTENSION
  4. OMNIC [Concomitant]
     Indication: BENIGN PROSTATIC HYPERPLASIA
  5. CARDIOASPIRINA [Concomitant]
     Indication: BENIGN PROSTATIC HYPERPLASIA
  6. LOSARTAN/HCTZ [Concomitant]

REACTIONS (6)
  - Hepatotoxicity [Unknown]
  - Keratoacanthoma [Unknown]
  - Skin lesion [Unknown]
  - Neoplasm [Unknown]
  - Hyperbilirubinaemia [Unknown]
  - Skin toxicity [Unknown]
